FAERS Safety Report 13999695 (Version 1)
Quarter: 2017Q3

REPORT INFORMATION
  Report Type: Spontaneous
  Country: FR (occurrence: FR)
  Receive Date: 20170922
  Receipt Date: 20170922
  Transmission Date: 20171128
  Serious: Yes (Other)
  Sender: FDA-Public Use
  Company Number: FR-MERCK KGAA-2027248

PATIENT
  Age: 70 Year
  Sex: Male

DRUGS (11)
  1. NOVOTHYROX [Suspect]
     Active Substance: LEVOTHYROXINE SODIUM
     Indication: HYPOTHYROIDISM
     Route: 048
     Dates: start: 201707
  2. KARDEGIC(ACETYLSALICYLATE LYSINE)(ACETYLSALICYLATE LYSINE) [Concomitant]
  3. LIPTRUZET [Concomitant]
     Active Substance: ATORVASTATIN CALCIUM\EZETIMIBE
  4. LEVOTHYROXINE SODIUM. [Suspect]
     Active Substance: LEVOTHYROXINE SODIUM
     Route: 048
     Dates: start: 201707
  5. ZYLORIC(ALLOPURINOL)(ALLOPURINOL) [Concomitant]
  6. MOLSIDOMINE(MOLSIDOMINE)(4 MILLIGRAM)(MOLSIDOMINE) [Concomitant]
  7. TRIATEC /00116401/(PANADEINE CO)(10 MILLIGRAM)(CODEINE PHOSPHATE, PA [Concomitant]
  8. BURINEX(BUMETANIDE)(BUMETANIDE) [Concomitant]
  9. CARDENSIEL(BISOPROLOL FUMARATE)(10 MILLIGRAM)(BISOPROLOL FUMARATE) [Concomitant]
  10. SYMBICORT [Concomitant]
     Active Substance: BUDESONIDE\FORMOTEROL FUMARATE DIHYDRATE
  11. ELIQUIS [Concomitant]
     Active Substance: APIXABAN

REACTIONS (5)
  - Rash [None]
  - Dry skin [None]
  - Muscle spasms [None]
  - Alopecia [None]
  - Blood thyroid stimulating hormone increased [None]

NARRATIVE: CASE EVENT DATE: 201707
